FAERS Safety Report 20224388 (Version 1)
Quarter: 2021Q4

REPORT INFORMATION
  Report Type: Other
  Country: CA (occurrence: None)
  Receive Date: 20211223
  Receipt Date: 20211223
  Transmission Date: 20220304
  Serious: Yes (Death, Hospitalization, Other)
  Sender: FDA-Public Use
  Company Number: CA-ROCHE-2983697

PATIENT

DRUGS (3)
  1. ATEZOLIZUMAB [Suspect]
     Active Substance: ATEZOLIZUMAB
     Indication: Small cell lung cancer
     Route: 065
  2. ETOPOSIDE [Suspect]
     Active Substance: ETOPOSIDE
     Indication: Small cell lung cancer
     Route: 065
  3. CARBOPLATIN [Suspect]
     Active Substance: CARBOPLATIN
     Indication: Small cell lung cancer
     Route: 065

REACTIONS (14)
  - Death [Fatal]
  - Haematotoxicity [Unknown]
  - Hyponatraemia [Unknown]
  - Adrenal insufficiency [Unknown]
  - Hypothyroidism [Unknown]
  - Diarrhoea [Unknown]
  - Mucosal inflammation [Unknown]
  - Vomiting [Unknown]
  - Anaemia [Unknown]
  - Febrile neutropenia [Unknown]
  - Neutrophil count decreased [Unknown]
  - Muscular weakness [Unknown]
  - Blood creatinine increased [Unknown]
  - Gastrointestinal toxicity [Unknown]
